FAERS Safety Report 11985699 (Version 2)
Quarter: 2019Q1

REPORT INFORMATION
  Report Type: Report from Study
  Country: US (occurrence: US)
  Receive Date: 20160201
  Receipt Date: 20190322
  Transmission Date: 20190417
  Serious: No
  Sender: FDA-Public Use
  Company Number: US-AMGEN-USASL2016010424

PATIENT
  Age: 62 Year
  Sex: Male

DRUGS (3)
  1. ENBREL [Suspect]
     Active Substance: ETANERCEPT
     Indication: RHEUMATOID ARTHRITIS
     Dosage: UNK
     Route: 065
     Dates: start: 201511
  2. METHOTREXATE. [Concomitant]
     Active Substance: METHOTREXATE
     Dosage: UNK
  3. XELJANZ [Concomitant]
     Active Substance: TOFACITINIB CITRATE
     Dosage: UNK

REACTIONS (12)
  - Back pain [Unknown]
  - Weight bearing difficulty [Unknown]
  - Musculoskeletal discomfort [Unknown]
  - Drug ineffective [Unknown]
  - Myalgia [Unknown]
  - Condition aggravated [Unknown]
  - Arthralgia [Not Recovered/Not Resolved]
  - Muscle tightness [Unknown]
  - Product dose omission [Unknown]
  - Joint swelling [Unknown]
  - Arthropathy [Unknown]
  - Joint range of motion decreased [Unknown]
